FAERS Safety Report 21689266 (Version 1)
Quarter: 2022Q4

REPORT INFORMATION
  Report Type: Spontaneous
  Country: US (occurrence: US)
  Receive Date: 20221206
  Receipt Date: 20221206
  Transmission Date: 20230113
  Serious: No
  Sender: FDA-Public Use
  Company Number: US-MYLANLABS-2022M1122735

PATIENT
  Sex: Female

DRUGS (1)
  1. ESTRADIOL TRANSDERMAL SYSTEM [Suspect]
     Active Substance: ESTRADIOL
     Indication: Product used for unknown indication
     Dosage: TWICE-WEEKLY, QD
     Route: 062

REACTIONS (5)
  - Skin laceration [Unknown]
  - Pruritus [Unknown]
  - Absorbable device issue [Unknown]
  - Product physical issue [Unknown]
  - Product shape issue [Unknown]
